FAERS Safety Report 22360633 (Version 1)
Quarter: 2023Q2

REPORT INFORMATION
  Report Type: Spontaneous
  Country: US (occurrence: US)
  Receive Date: 20230524
  Receipt Date: 20230524
  Transmission Date: 20230722
  Serious: Yes (Other)
  Sender: FDA-Public Use
  Company Number: US-drreddys-LIT/USA/23/0165256

PATIENT
  Age: 8 Month

DRUGS (2)
  1. BORTEZOMIB [Suspect]
     Active Substance: BORTEZOMIB
     Indication: B-cell lymphoma
  2. ABATACEPT [Suspect]
     Active Substance: ABATACEPT
     Indication: B-cell lymphoma

REACTIONS (2)
  - B-cell lymphoma refractory [Recovering/Resolving]
  - Drug ineffective [Unknown]
